FAERS Safety Report 11323538 (Version 1)
Quarter: 2015Q3

REPORT INFORMATION
  Report Type: Spontaneous
  Country: JP (occurrence: JP)
  Receive Date: 20150730
  Receipt Date: 20150730
  Transmission Date: 20151125
  Serious: Yes (Other)
  Sender: FDA-Public Use
  Company Number: JP-VIIV HEALTHCARE LIMITED-JP2014JPN030888

PATIENT
  Age: 49 Year
  Sex: Male

DRUGS (4)
  1. CELSENTRI [Suspect]
     Active Substance: MARAVIROC
     Indication: HIV INFECTION
     Dosage: 150 MG, BID
     Dates: start: 201211
  2. TRUVADA [Concomitant]
     Active Substance: EMTRICITABINE\TENOFOVIR DISOPROXIL FUMARATE
     Indication: HIV INFECTION
     Dosage: UNK
     Dates: start: 200911
  3. REYATAZ [Concomitant]
     Active Substance: ATAZANAVIR SULFATE
     Indication: HIV INFECTION
     Dosage: UNK
     Dates: start: 200911, end: 201403
  4. NORVIR [Concomitant]
     Active Substance: RITONAVIR
     Indication: HIV INFECTION
     Dosage: UNK MG, UNK
     Dates: start: 200911, end: 201403

REACTIONS (1)
  - Bronchopulmonary aspergillosis [Recovering/Resolving]

NARRATIVE: CASE EVENT DATE: 201403
